FAERS Safety Report 7512276-2 (Version None)
Quarter: 2011Q2

REPORT INFORMATION
  Report Type: 
  Country: None (occurrence: None)
  Receive Date: 20110531
  Receipt Date: 20110516
  Transmission Date: 20111010
  Serious: Yes (Other)
  Sender: FDA-Public Use
  Company Number: PHHY2011US42394

PATIENT
  Sex: Female

DRUGS (8)
  1. AVALIDE [Concomitant]
     Dosage: 1 DF, UNK
  2. FEMARA [Concomitant]
     Dosage: 2.5 MG, UNK
  3. RECLAST [Suspect]
     Dosage: UNK
     Route: 042
     Dates: start: 20101129
  4. INFLUENZA VIRUS VACC SEASONAL INN [Suspect]
     Indication: IMMUNISATION
     Dosage: 1 DF
  5. TOPROL-XL [Concomitant]
     Dosage: 100 MG, UNK
  6. SIMVASTATIN [Concomitant]
     Dosage: 40 MG, UNK
  7. METFFORMIN HYDROCHLORIDE [Concomitant]
     Dosage: 500 MG, UNK
  8. GLIPIZIDE [Concomitant]

REACTIONS (5)
  - MUSCULOSKELETAL PAIN [None]
  - VACCINATION FAILURE [None]
  - INFLUENZA [None]
  - ARTHRALGIA [None]
  - GRIP STRENGTH DECREASED [None]
